FAERS Safety Report 9964752 (Version 1)
Quarter: 2014Q1

REPORT INFORMATION
  Report Type: Spontaneous
  Country: US (occurrence: US)
  Receive Date: 20140305
  Receipt Date: 20140305
  Transmission Date: 20141002
  Serious: No
  Sender: FDA-Public Use
  Company Number: US-AMGEN-USASP2014001367

PATIENT
  Age: 16 Year
  Sex: Female

DRUGS (1)
  1. ENBREL [Suspect]
     Indication: JUVENILE IDIOPATHIC ARTHRITIS
     Dosage: 50 MG, UNK
     Route: 058

REACTIONS (5)
  - Injection site rash [Unknown]
  - Injection site reaction [Unknown]
  - Injection site warmth [Unknown]
  - Injection site induration [Unknown]
  - Injection site pruritus [Unknown]
